FAERS Safety Report 12072818 (Version 4)
Quarter: 2017Q1

REPORT INFORMATION
  Report Type: Spontaneous
  Country: US (occurrence: US)
  Receive Date: 20160212
  Receipt Date: 20170314
  Transmission Date: 20170428
  Serious: Yes (Other)
  Sender: FDA-Public Use
  Company Number: US-PFIZER INC-2016076485

PATIENT
  Age: 85 Year
  Sex: Female

DRUGS (3)
  1. IBRANCE [Suspect]
     Active Substance: PALBOCICLIB
     Dosage: 125 UNK, UNK
     Dates: start: 20160104
  2. IBRANCE [Suspect]
     Active Substance: PALBOCICLIB
     Indication: BREAST CANCER FEMALE
     Dosage: 125 MG, UNK
     Dates: start: 20150129
  3. LETROZOLE. [Suspect]
     Active Substance: LETROZOLE
     Indication: BREAST CANCER FEMALE
     Dosage: 2.5 MG, UNK
     Dates: start: 20150129

REACTIONS (8)
  - Dizziness [Unknown]
  - Full blood count decreased [Unknown]
  - Glaucoma [Unknown]
  - Condition aggravated [Unknown]
  - Balance disorder [Unknown]
  - Fatigue [Unknown]
  - Influenza [Unknown]
  - Alopecia [Unknown]

NARRATIVE: CASE EVENT DATE: 2015
